FAERS Safety Report 8892968 (Version 1)
Quarter: 2012Q4

REPORT INFORMATION
  Report Type: 
  Country: US (occurrence: US)
  Receive Date: 20121107
  Receipt Date: 20121107
  Transmission Date: 20130627
  Serious: No
  Sender: FDA-Public Use
  Company Number: US-AMGEN-USASP2011061072

PATIENT
  Age: 54 Year
  Sex: Female

DRUGS (7)
  1. ENBREL [Suspect]
     Dosage: 50 mg, qwk
  2. LEVOXYL [Concomitant]
     Dosage: UNK
  3. FISH OIL [Concomitant]
  4. MULTIVITAMIN                       /00097801/ [Concomitant]
  5. CALCIUM +VIT D [Concomitant]
  6. VITAMIN D /00107901/ [Concomitant]
  7. GINKGO BILOBA [Concomitant]

REACTIONS (1)
  - Psoriasis [Unknown]
